FAERS Safety Report 8632137 (Version 2)
Quarter: 2013Q2

REPORT INFORMATION
  Report Type: Spontaneous
  Country: US (occurrence: US)
  Receive Date: 20120625
  Receipt Date: 20130530
  Transmission Date: 20140414
  Serious: Yes (Hospitalization)
  Sender: FDA-Public Use
  Company Number: US-BAYER-2012-059887

PATIENT
  Age: 21 Year
  Sex: Female
  Weight: 89 kg

DRUGS (6)
  1. YAZ [Suspect]
     Indication: CONTRACEPTION
     Dosage: UNK
     Dates: start: 200708, end: 200803
  2. PROMETHAZINE [Concomitant]
     Dosage: 25 MG, UNK
     Route: 048
     Dates: start: 20071203
  3. HYDROCODONE W/APAP [Concomitant]
     Dosage: UNK
     Route: 048
     Dates: start: 20071203
  4. PHENERGAN [Concomitant]
  5. HYDROCODONE [Concomitant]
  6. ALEVE [Concomitant]

REACTIONS (5)
  - Gallbladder non-functioning [None]
  - Injury [None]
  - Pain [None]
  - Cholecystitis chronic [None]
  - Emotional distress [None]
